FAERS Safety Report 10700515 (Version 2)
Quarter: 2015Q1

REPORT INFORMATION
  Report Type: Spontaneous
  Country: RU (occurrence: RU)
  Receive Date: 20150109
  Receipt Date: 20150305
  Transmission Date: 20150721
  Serious: Yes (Congenital Anomaly, Other)
  Sender: FDA-Public Use
  Company Number: RU-NOVOPROD-434401

PATIENT
  Sex: Male
  Weight: 4.7 kg

DRUGS (1)
  1. LEVEMIR [Suspect]
     Active Substance: INSULIN DETEMIR
     Indication: GESTATIONAL DIABETES
     Dosage: 6 U, QD
     Route: 064
     Dates: start: 20140409, end: 20140614

REACTIONS (8)
  - Developmental hip dysplasia [Not Recovered/Not Resolved]
  - Injury to brachial plexus due to birth trauma [Not Recovered/Not Resolved]
  - Fracture of clavicle due to birth trauma [Recovered/Resolved with Sequelae]
  - Umbilical cord short [Recovered/Resolved with Sequelae]
  - Neonatal hypoxia [Recovered/Resolved with Sequelae]
  - Foetal exposure during pregnancy [Recovered/Resolved]
  - Brain malformation [Recovered/Resolved]
  - Hypoglycaemia neonatal [Recovered/Resolved]

NARRATIVE: CASE EVENT DATE: 20140409
